FAERS Safety Report 9259995 (Version 6)
Quarter: 2013Q3

REPORT INFORMATION
  Report Type: Spontaneous
  Country: HU (occurrence: HU)
  Receive Date: 20130429
  Receipt Date: 20130724
  Transmission Date: 20140515
  Serious: Yes (Hospitalization)
  Sender: FDA-Public Use
  Company Number: HU-AMGEN-HUNSP2013028733

PATIENT
  Age: 92 Year
  Sex: Female

DRUGS (12)
  1. PROLIA [Suspect]
     Indication: PRODUCT USED FOR UNKNOWN INDICATION
     Dosage: 60 MG, 1 AMPULE, Q6MO
     Route: 058
     Dates: start: 20130422
  2. LIDOCAIN                           /00033401/ [Concomitant]
     Indication: BACK PAIN
     Dosage: UNK
     Route: 042
     Dates: start: 20130422
  3. DIPROFOS [Concomitant]
     Indication: BACK PAIN
     Dosage: UNK
     Route: 042
     Dates: start: 20130422
  4. LENDORMIN [Concomitant]
     Dosage: 10 MG, UNK
  5. AMLODIPIN TEVA [Concomitant]
     Dosage: 10 MG, UNK
  6. OLICARD [Concomitant]
     Dosage: 40 MG, UNK
  7. KERBERAN [Concomitant]
     Dosage: 75 MG, UNK
  8. MERAMYL [Concomitant]
     Dosage: 5 MG, UNK
  9. NOOTROPIL [Concomitant]
     Dosage: 1200 MG, UNK
  10. PROTONEXA [Concomitant]
  11. VITAMIN D3 [Concomitant]
  12. CALCIUM [Concomitant]

REACTIONS (10)
  - Gastritis atrophic [Unknown]
  - Haemorrhage [Unknown]
  - Vertebrobasilar insufficiency [Unknown]
  - Urinary tract infection [Unknown]
  - Hepatic steatosis [Unknown]
  - Syncope [Unknown]
  - Loss of consciousness [Recovered/Resolved]
  - Pernicious anaemia [Unknown]
  - Decreased appetite [Unknown]
  - Weight decreased [Unknown]
